FAERS Safety Report 10069425 (Version 1)
Quarter: 2014Q2

REPORT INFORMATION
  Report Type: Spontaneous
  Country: GB (occurrence: GB)
  Receive Date: 20140410
  Receipt Date: 20140410
  Transmission Date: 20141212
  Serious: Yes (Hospitalization)
  Sender: FDA-Public Use
  Company Number: GB-JNJFOC-20140318991

PATIENT
  Age: 24 Month
  Sex: Male

DRUGS (1)
  1. CALPOL [Suspect]
     Indication: OROPHARYNGEAL PAIN
     Route: 065

REACTIONS (2)
  - Tongue discolouration [Not Recovered/Not Resolved]
  - Drug ineffective [Unknown]
